FAERS Safety Report 9716989 (Version 1)
Quarter: 2013Q4

REPORT INFORMATION
  Report Type: Spontaneous
  Country: US (occurrence: US)
  Receive Date: 20131127
  Receipt Date: 20131127
  Transmission Date: 20140711
  Serious: No
  Sender: FDA-Public Use
  Company Number: US-GILEAD-2009-0020259

PATIENT
  Age: 58 Year
  Sex: Male

DRUGS (10)
  1. LETAIRIS [Suspect]
     Indication: PULMONARY ARTERIAL HYPERTENSION
     Route: 048
     Dates: start: 20080926
  2. REVATIO [Concomitant]
  3. WARFARIN [Concomitant]
  4. LASIX [Concomitant]
  5. COREG [Concomitant]
  6. LANOXIN [Concomitant]
  7. ADVAIR [Concomitant]
  8. FLONASE [Concomitant]
  9. KLOR-CON [Concomitant]
  10. CELEBREX [Concomitant]

REACTIONS (1)
  - Red blood cell count decreased [Not Recovered/Not Resolved]
